FAERS Safety Report 9147357 (Version 4)
Quarter: 2014Q1

REPORT INFORMATION
  Report Type: Not Available
  Country: GB (occurrence: GB)
  Receive Date: 20130307
  Receipt Date: 20140228
  Transmission Date: 20141002
  Serious: Yes (Death)
  Sender: FDA-Public Use
  Company Number: GB-NAPPMUNDI-GBR-2013-0013353

PATIENT
  Age: 40 Year
  Sex: Male
  Weight: 53 kg

DRUGS (4)
  1. MORPHINE SULFATE [Suspect]
     Indication: PRODUCT USED FOR UNKNOWN INDICATION
     Dosage: UNK
     Route: 065
     Dates: end: 201207
  2. ALCOHOL [Suspect]
     Indication: PRODUCT USED FOR UNKNOWN INDICATION
     Dosage: UNK
     Route: 065
     Dates: end: 201207
  3. CANNABIS [Suspect]
     Indication: PRODUCT USED FOR UNKNOWN INDICATION
     Dosage: UNK
     Route: 065
     Dates: end: 201207
  4. SUBUTEX [Suspect]
     Indication: DRUG DEPENDENCE
     Route: 065

REACTIONS (3)
  - Substance abuse [Fatal]
  - Road traffic accident [Fatal]
  - Multiple injuries [Fatal]
